FAERS Safety Report 13608972 (Version 2)
Quarter: 2020Q2

REPORT INFORMATION
  Report Type: Spontaneous
  Country: RU (occurrence: RU)
  Receive Date: 20170602
  Receipt Date: 20200531
  Transmission Date: 20200713
  Serious: Yes (Hospitalization, Other)
  Sender: FDA-Public Use
  Company Number: RU-GLENMARK PHARMACEUTICALS-2017GMK027701

PATIENT

DRUGS (5)
  1. CARDIOMAGNYL [Concomitant]
     Active Substance: ASPIRIN\MAGNESIUM HYDROXIDE
     Indication: PRODUCT USED FOR UNKNOWN INDICATION
     Dosage: UNK
     Route: 048
  2. GLEVO [Suspect]
     Active Substance: LEVOFLOXACIN
     Indication: RHINORRHOEA
  3. GLEVO [Suspect]
     Active Substance: LEVOFLOXACIN
     Indication: RESPIRATORY TRACT INFECTION
     Dosage: 500 MG, QD
     Route: 048
     Dates: start: 20170524, end: 20170524
  4. GLEVO [Suspect]
     Active Substance: LEVOFLOXACIN
     Indication: COUGH
  5. GLEVO [Suspect]
     Active Substance: LEVOFLOXACIN
     Indication: OROPHARYNGEAL PAIN

REACTIONS (7)
  - Face oedema [Recovered/Resolved]
  - Product use in unapproved indication [Unknown]
  - Urticaria [Recovered/Resolved]
  - Erythema [Recovered/Resolved]
  - Pruritus [Recovering/Resolving]
  - Lip oedema [Recovered/Resolved]
  - Angioedema [Recovered/Resolved]

NARRATIVE: CASE EVENT DATE: 20170524
